FAERS Safety Report 6178135-5 (Version None)
Quarter: 2009Q2

REPORT INFORMATION
  Report Type: 
  Country: None (occurrence: None)
  Receive Date: 20090504
  Receipt Date: 20090427
  Transmission Date: 20091009
  Serious: Yes (Hospitalization, Other)
  Sender: FDA-Public Use
  Company Number: PHHY2009FR12231

PATIENT
  Sex: Male
  Weight: 83 kg

DRUGS (1)
  1. GLEEVEC [Suspect]
     Indication: CHRONIC MYELOID LEUKAEMIA
     Dosage: 400 MG, QD

REACTIONS (3)
  - BRONCHITIS [None]
  - LUNG ADENOCARCINOMA [None]
  - LUNG LOBECTOMY [None]
